FAERS Safety Report 9449575 (Version 2)
Quarter: 2013Q3

REPORT INFORMATION
  Report Type: Spontaneous
  Country: BR (occurrence: BR)
  Receive Date: 20130809
  Receipt Date: 20130827
  Transmission Date: 20140515
  Serious: Yes (Other)
  Sender: FDA-Public Use
  Company Number: BR-AMGEN-BRASP2013055791

PATIENT
  Age: 61 Year
  Sex: Female
  Weight: 70 kg

DRUGS (5)
  1. ENBREL [Suspect]
     Indication: RHEUMATOID ARTHRITIS
     Dosage: 50 MG, ONCE WEEKLY
     Route: 065
     Dates: start: 20130729, end: 20130729
  2. LOSARTAN POTASSIUM [Concomitant]
     Indication: BLOOD PRESSURE ABNORMAL
     Dosage: 50 MG, 2X/DAY
  3. SIMVASTATIN [Concomitant]
     Dosage: 40 MG, 1X/DAY
  4. INDAPAMIDE [Concomitant]
     Dosage: 1.5 MG, 1X/DAY
  5. OMEPRAZOL                          /00661201/ [Concomitant]
     Dosage: 1 CAPSULE (20 MG), A DAY, FASTING

REACTIONS (9)
  - Tinnitus [Unknown]
  - Blood pressure increased [Unknown]
  - Hypoaesthesia [Unknown]
  - Formication [Unknown]
  - Finger deformity [Unknown]
  - Tongue disorder [Unknown]
  - Feeling abnormal [Unknown]
  - Labyrinthitis [Unknown]
  - Sleep disorder [Unknown]
